FAERS Safety Report 20237381 (Version 2)
Quarter: 2022Q1

REPORT INFORMATION
  Report Type: Spontaneous
  Country: US (occurrence: None)
  Receive Date: 20211228
  Receipt Date: 20220204
  Transmission Date: 20220423
  Serious: Yes (Hospitalization)
  Sender: FDA-Public Use
  Company Number: 2021A895894

PATIENT
  Sex: Female
  Weight: 74.8 kg

DRUGS (1)
  1. CALQUENCE [Suspect]
     Active Substance: ACALABRUTINIB
     Indication: Chronic lymphocytic leukaemia
     Route: 048
     Dates: start: 20141214

REACTIONS (3)
  - Syncope [Unknown]
  - Haemoglobin decreased [Unknown]
  - Weight increased [Unknown]
